FAERS Safety Report 17173997 (Version 1)
Quarter: 2019Q4

REPORT INFORMATION
  Report Type: Spontaneous
  Country: US (occurrence: US)
  Receive Date: 20191218
  Receipt Date: 20191218
  Transmission Date: 20200122
  Serious: Yes (Disabling)
  Sender: FDA-Public Use
  Company Number: None

PATIENT
  Age: 60 Year
  Sex: Female
  Weight: 71.55 kg

DRUGS (10)
  1. MAGNESIUM [Concomitant]
     Active Substance: MAGNESIUM
  2. AMLODIPINE BESYLATE 5MG TAB [Suspect]
     Active Substance: AMLODIPINE BESYLATE
     Indication: HYPERTENSION
     Dosage: ?          QUANTITY:1 TABLET(S);?
     Route: 048
     Dates: start: 20190815, end: 20191130
  3. CALCIUM [Concomitant]
     Active Substance: CALCIUM
  4. MELATONIN [Concomitant]
     Active Substance: MELATONIN
  5. MULTIVITAMIN [Concomitant]
     Active Substance: VITAMINS
  6. PLANT OMEGA OILS [Concomitant]
  7. TURMERIC [Concomitant]
     Active Substance: HERBALS\TURMERIC
  8. COENZYME Q10 [Concomitant]
     Active Substance: UBIDECARENONE
  9. VITAMIN A,K,D [Concomitant]
  10. OLIVE LEAF EXTRACT [Concomitant]

REACTIONS (5)
  - Chills [None]
  - Anxiety [None]
  - Paraesthesia [None]
  - Insomnia [None]
  - Therapeutic product effect incomplete [None]

NARRATIVE: CASE EVENT DATE: 20190819
